FAERS Safety Report 24450219 (Version 1)
Quarter: 2024Q4

REPORT INFORMATION
  Report Type: Report from Study
  Country: US (occurrence: US)
  Receive Date: 20241017
  Receipt Date: 20241017
  Transmission Date: 20250115
  Serious: Yes (Hospitalization, Other)
  Sender: ROCHE
  Company Number: US-ROCHE-10000104656

PATIENT
  Age: 60 Year
  Sex: Female
  Weight: 63.5 kg

DRUGS (6)
  1. OCREVUS [Suspect]
     Active Substance: OCRELIZUMAB
     Indication: Relapsing-remitting multiple sclerosis
     Route: 042
     Dates: start: 2017
  2. ADDERALL [Concomitant]
     Active Substance: AMPHETAMINE ASPARTATE\AMPHETAMINE SULFATE\DEXTROAMPHETAMINE SACCHARATE\DEXTROAMPHETAMINE SULFATE
     Indication: Hypersomnia
     Dosage: 3 TABLETS IN THE A.M. - 3 TABLETS AT NOON AND  2 TABLETS AT 5 P.M.
     Route: 048
  3. LASIX [Concomitant]
     Active Substance: FUROSEMIDE
     Route: 048
     Dates: start: 2024
  4. SPIRONOLACTONE [Concomitant]
     Active Substance: SPIRONOLACTONE
     Route: 048
     Dates: start: 2024
  5. NADOLOL [Concomitant]
     Active Substance: NADOLOL
     Indication: Tachycardia
     Dosage: 1/2 TABLET AT BEDTIME
     Route: 048
     Dates: start: 202112
  6. KESIMPTA [Concomitant]
     Active Substance: OFATUMUMAB

REACTIONS (21)
  - Personality change [Recovered/Resolved]
  - Migraine [Unknown]
  - Irritability [Unknown]
  - Nausea [Unknown]
  - Fall [Unknown]
  - Gait disturbance [Not Recovered/Not Resolved]
  - Gait disturbance [Not Recovered/Not Resolved]
  - Disorientation [Unknown]
  - Haemorrhage [Recovered/Resolved]
  - Head injury [Recovered/Resolved]
  - Eye contusion [Unknown]
  - Contusion [Unknown]
  - Concussion [Recovering/Resolving]
  - Dehydration [Recovered/Resolved]
  - Cellulitis [Recovered/Resolved]
  - Thrombosis [Recovered/Resolved]
  - Cerebral disorder [Not Recovered/Not Resolved]
  - Deep vein thrombosis [Not Recovered/Not Resolved]
  - Animal bite [Unknown]
  - Heart disease congenital [Recovered/Resolved]
  - Fatigue [Unknown]

NARRATIVE: CASE EVENT DATE: 20240921
